FAERS Safety Report 4863257-9 (Version None)
Quarter: 2005Q4

REPORT INFORMATION
  Report Type: 
  Country: None (occurrence: None)
  Receive Date: 20051219
  Receipt Date: 20051205
  Transmission Date: 20060501
  Serious: Yes (Hospitalization, Other)
  Sender: FDA-Public Use
  Company Number: 8013745

PATIENT
  Age: 58 Year
  Sex: Female

DRUGS (5)
  1. KEPPRA [Suspect]
     Indication: CONVULSION PROPHYLAXIS
     Dosage: 500 MG 2/D PO
     Route: 048
     Dates: start: 20051012, end: 20051104
  2. KEPPRA [Suspect]
     Indication: CONVULSION PROPHYLAXIS
     Dosage: 750 MG 2/D PO
     Route: 048
     Dates: start: 20051104, end: 20051111
  3. DILANTIN [Suspect]
     Indication: CONVULSION PROPHYLAXIS
     Dates: start: 20050901, end: 20051010
  4. TRAZODONE [Concomitant]
  5. REMERON [Concomitant]

REACTIONS (11)
  - ABDOMINAL PAIN [None]
  - ANEURYSM [None]
  - ASPARTATE AMINOTRANSFERASE INCREASED [None]
  - BLOOD ALKALINE PHOSPHATASE INCREASED [None]
  - BLOOD AMYLASE INCREASED [None]
  - BLOOD LACTATE DEHYDROGENASE INCREASED [None]
  - DIVERTICULITIS [None]
  - GAMMA-GLUTAMYLTRANSFERASE INCREASED [None]
  - HAEMORRHAGE [None]
  - NAUSEA [None]
  - VOMITING [None]
